FAERS Safety Report 10260262 (Version 2)
Quarter: 2016Q4

REPORT INFORMATION
  Report Type: Spontaneous
  Country: US (occurrence: US)
  Receive Date: 20140625
  Receipt Date: 20161007
  Transmission Date: 20170206
  Serious: No
  Sender: FDA-Public Use
  Company Number: US-SA-2014SA047903

PATIENT
  Age: 61 Year
  Sex: Female

DRUGS (34)
  1. CALCIUM CITRATE/ERGOCALCIFEROL [Concomitant]
     Dosage: 315-200 MG-UNIT
  2. CARBIDOPA/LEVODOPA [Concomitant]
     Dosage: 10-100 MG
  3. CIPRO [Concomitant]
     Active Substance: CIPROFLOXACIN HYDROCHLORIDE
     Indication: URINARY TRACT INFECTION
     Route: 048
  4. SOLU-MEDROL [Concomitant]
     Active Substance: METHYLPREDNISOLONE SODIUM SUCCINATE
     Dosage: 250 MG BY MOUTH ML EVERY MONTH. TAKES 4 ML
     Route: 048
  5. CIPROFLOXACIN. [Concomitant]
     Active Substance: CIPROFLOXACIN
     Dosage: 250 MG
  6. VESICARE [Concomitant]
     Active Substance: SOLIFENACIN SUCCINATE
     Dosage: 5 MG
  7. AUBAGIO [Suspect]
     Active Substance: TERIFLUNOMIDE
     Indication: MULTIPLE SCLEROSIS
     Dosage: IN THE MORNING
     Route: 065
     Dates: start: 20131113
  8. TYLENOL [Concomitant]
     Active Substance: ACETAMINOPHEN
     Dosage: TABLET BY MOUTH AT BEDTIME AS NEEDED
     Route: 048
  9. MIRALAX [Concomitant]
     Active Substance: POLYETHYLENE GLYCOL 3350
     Dosage: POW 3350 NF
  10. GABAPENTIN. [Concomitant]
     Active Substance: GABAPENTIN
     Dosage: 800 MG
  11. GLUCOSAMINE [Concomitant]
     Active Substance: GLUCOSAMINE
     Indication: OSTEOARTHRITIS
     Dosage: 500-400 MG
  12. NIZORAL [Concomitant]
     Active Substance: KETOCONAZOLE
     Dosage: TOPICALLY TWICE AWEEK
  13. MYRBETRIQ [Concomitant]
     Active Substance: MIRABEGRON
     Dosage: 50 MG
  14. CLIMARA [Concomitant]
     Active Substance: ESTRADIOL
     Dosage: DIS WEEKLY
  15. ALENDRONATE [Concomitant]
     Active Substance: ALENDRONATE SODIUM
     Dosage: 70 MG
  16. PAROXETINE. [Concomitant]
     Active Substance: PAROXETINE
  17. FOSAMAX [Concomitant]
     Active Substance: ALENDRONATE SODIUM
     Dosage: I TABLET BY MOUTH ONCE A WEEK.
     Route: 048
  18. VALIUM [Concomitant]
     Active Substance: DIAZEPAM
     Indication: ANXIETY
     Dosage: 2 MG BY MOUTH EVERY 8 HOURS AS NEEDED.
     Route: 048
  19. NEURONTIN [Concomitant]
     Active Substance: GABAPENTIN
     Route: 048
  20. DITROPAN XL [Concomitant]
     Active Substance: OXYBUTYNIN CHLORIDE
     Route: 048
  21. AFRIN [Concomitant]
     Active Substance: OXYMETAZOLINE
     Indication: NASAL CONGESTION
     Dosage: 1 SPRAY INTO EACH NOSTRAL AS NEEDED.
  22. SUMATRIPTAN. [Concomitant]
     Active Substance: SUMATRIPTAN
     Dosage: 1 SPRAY INTO EACH NOSTRIL AS NEEDED
  23. CALCIUM CARBONATE/COLECALCIFEROL [Concomitant]
     Dosage: 1 TABLET BY MOUTH DAILY (EVERY 24 HOURS)
     Route: 048
  24. VITAMIN D [Concomitant]
     Active Substance: CHOLECALCIFEROL
     Dosage: DOSE:1000 UNIT(S)
     Route: 048
  25. PAXIL [Concomitant]
     Active Substance: PAROXETINE HYDROCHLORIDE
     Dosage: 1 TABLET BY MOUTH EVERY MORNING.
     Route: 048
  26. BACLOFEN. [Concomitant]
     Active Substance: BACLOFEN
     Dosage: 10 MG
  27. BUPROPION HYDROCHLORIDE. [Concomitant]
     Active Substance: BUPROPION HYDROCHLORIDE
     Route: 048
  28. SINEMET [Concomitant]
     Active Substance: CARBIDOPA\LEVODOPA
     Dosage: 25-100 MG
     Route: 048
  29. SENOKOT-S [Concomitant]
     Active Substance: DOCUSATE SODIUM\SENNOSIDES
     Indication: CONSTIPATION
     Dosage: 1 TABLET BY MOUTH 2TIMES DAILY; 8.6 TO 50 MG
     Route: 048
  30. SENNA [Concomitant]
     Active Substance: SENNA LEAF\SENNOSIDES\SENNOSIDES A AND B
     Dosage: 8.6 MG
  31. SOLU-MEDROL [Concomitant]
     Active Substance: METHYLPREDNISOLONE SODIUM SUCCINATE
     Dosage: 125 MG
  32. VITAMINS NOS [Concomitant]
     Active Substance: VITAMINS
     Route: 048
  33. OXYBUTYNIN [Concomitant]
     Active Substance: OXYBUTYNIN
     Dosage: 10 MG
  34. BOTOX [Concomitant]
     Active Substance: ONABOTULINUMTOXINA
     Dosage: 100 UNIT

REACTIONS (2)
  - Alopecia [Not Recovered/Not Resolved]
  - Weight increased [Not Recovered/Not Resolved]

NARRATIVE: CASE EVENT DATE: 201402
